FAERS Safety Report 4944195-X (Version None)
Quarter: 2006Q1

REPORT INFORMATION
  Report Type: 
  Country: None (occurrence: None)
  Receive Date: 20060309
  Receipt Date: 20060220
  Transmission Date: 20060701
  Serious: Yes (Death, Hospitalization)
  Sender: FDA-Public Use
  Company Number: TRP_0697_2006

PATIENT
  Age: 56 Year
  Sex: Female

DRUGS (5)
  1. RIBASPHERE [Suspect]
     Indication: HEPATITIS C
     Dosage: 600 MG BID PO
     Route: 048
     Dates: start: 20051216
  2. PEG-INTRON [Suspect]
     Indication: HEPATITIS C
     Dosage: 120 MCG QWK SC
     Route: 058
     Dates: start: 20051216
  3. DOCUSATE SODIUM [Concomitant]
  4. INDERAL [Concomitant]
  5. PROZAC [Concomitant]

REACTIONS (5)
  - COMA [None]
  - DYSPNOEA [None]
  - INFECTION [None]
  - LUNG DISORDER [None]
  - RESPIRATORY DISORDER [None]
